FAERS Safety Report 7328410-3 (Version None)
Quarter: 2011Q1

REPORT INFORMATION
  Report Type: 
  Country: None (occurrence: None)
  Receive Date: 20110223
  Receipt Date: 20110209
  Transmission Date: 20110831
  Serious: Yes (Death)
  Sender: FDA-Public Use
  Company Number: AE 2011-048

PATIENT
  Age: 55 Year
  Sex: Male

DRUGS (1)
  1. FAZACLO ODT [Suspect]
     Dosage: 400-500 MG DAILY PO
     Route: 048
     Dates: start: 20090109, end: 20101129

REACTIONS (1)
  - DEATH [None]
